FAERS Safety Report 10742621 (Version 2)
Quarter: 2015Q1

REPORT INFORMATION
  Report Type: Spontaneous
  Country: DE (occurrence: DE)
  Receive Date: 20150127
  Receipt Date: 20150130
  Transmission Date: 20150721
  Serious: Yes (Other)
  Sender: FDA-Public Use
  Company Number: PHHY2015DE007901

PATIENT
  Sex: Female

DRUGS (3)
  1. METHOTREXATE [Concomitant]
     Active Substance: METHOTREXATE
     Indication: PRODUCT USED FOR UNKNOWN INDICATION
     Route: 065
  2. SANDIMMUN OPTORAL [Suspect]
     Active Substance: CYCLOSPORINE
     Indication: DERMATITIS ATOPIC
     Dosage: 200 MG, QD (100-0-100, BUT SOME TIME LESS)
     Route: 065
     Dates: start: 200212, end: 201212
  3. SANDIMMUN OPTORAL [Suspect]
     Active Substance: CYCLOSPORINE
     Dosage: UNK
     Route: 065
     Dates: end: 20141222

REACTIONS (16)
  - Product use issue [Unknown]
  - Otitis media bacterial [Unknown]
  - Balance disorder [Unknown]
  - Middle ear effusion [Unknown]
  - Nuchal rigidity [Not Recovered/Not Resolved]
  - Muscle rigidity [Not Recovered/Not Resolved]
  - General physical health deterioration [Unknown]
  - Condition aggravated [Recovered/Resolved]
  - Myosclerosis [Not Recovered/Not Resolved]
  - Ear disorder [Unknown]
  - Dermatitis atopic [Recovered/Resolved]
  - Myalgia [Not Recovered/Not Resolved]
  - Blood pressure increased [Unknown]
  - Back pain [Not Recovered/Not Resolved]
  - Staphylococcal infection [Unknown]
  - Dizziness [Unknown]

NARRATIVE: CASE EVENT DATE: 201304
